FAERS Safety Report 20376350 (Version 3)
Quarter: 2024Q3

REPORT INFORMATION
  Report Type: Report from Study
  Country: GB (occurrence: GB)
  Receive Date: 20220125
  Receipt Date: 20240708
  Transmission Date: 20241017
  Serious: Yes (Hospitalization, Other)
  Sender: JOHNSON AND JOHNSON
  Company Number: GB-JNJFOC-20211001943

PATIENT
  Age: 32 Year
  Sex: Female
  Weight: 114 kg

DRUGS (19)
  1. EPOPROSTENOL SODIUM [Suspect]
     Active Substance: EPOPROSTENOL SODIUM
     Indication: Pulmonary arterial hypertension
     Route: 042
     Dates: start: 20210910, end: 20220210
  2. EPOPROSTENOL SODIUM [Suspect]
     Active Substance: EPOPROSTENOL SODIUM
     Route: 042
     Dates: start: 20210901, end: 20210910
  3. EPOPROSTENOL SODIUM [Suspect]
     Active Substance: EPOPROSTENOL SODIUM
     Route: 042
     Dates: start: 20210903
  4. REVATIO [Concomitant]
     Active Substance: SILDENAFIL CITRATE
     Indication: Pulmonary arterial hypertension
     Route: 048
     Dates: start: 20191218, end: 20230711
  5. FUROSEMIDE [Concomitant]
     Active Substance: FUROSEMIDE
     Indication: Diuretic therapy
     Route: 048
     Dates: start: 20210901
  6. DALTEPARIN [Concomitant]
     Active Substance: DALTEPARIN
     Indication: Anticoagulant therapy
     Route: 058
     Dates: start: 20210901
  7. AMILORIDE HYDROCHLORIDE [Concomitant]
     Active Substance: AMILORIDE HYDROCHLORIDE
     Indication: Diuretic therapy
     Route: 048
     Dates: start: 20210901
  8. CYCLIZINE [Concomitant]
     Active Substance: CYCLIZINE
     Indication: Illness
     Route: 048
     Dates: start: 20210901
  9. ASPIRIN [Concomitant]
     Active Substance: ASPIRIN
     Indication: Pregnancy
     Route: 048
     Dates: start: 20210628
  10. DILTIAZEM [Concomitant]
     Active Substance: DILTIAZEM
     Indication: Pulmonary arterial hypertension
     Route: 048
     Dates: start: 20140324
  11. DILTIAZEM [Concomitant]
     Active Substance: DILTIAZEM
     Route: 048
     Dates: start: 20150303
  12. SILDENAFIL [Concomitant]
     Active Substance: SILDENAFIL
     Indication: Pulmonary arterial hypertension
     Route: 048
     Dates: start: 20191218
  13. GABAPENTIN [Concomitant]
     Active Substance: GABAPENTIN
     Indication: Analgesic therapy
     Route: 048
  14. SERTRALINE [Concomitant]
     Active Substance: SERTRALINE HYDROCHLORIDE
     Indication: Antidepressant therapy
     Route: 048
     Dates: end: 20230908
  15. AMBRISENTAN [Concomitant]
     Active Substance: AMBRISENTAN
     Indication: Pulmonary arterial hypertension
     Route: 048
     Dates: start: 20231101
  16. AMBRISENTAN [Concomitant]
     Active Substance: AMBRISENTAN
     Route: 048
     Dates: start: 20231024, end: 20231031
  17. ADCIRCA [Concomitant]
     Active Substance: TADALAFIL
     Indication: Pulmonary arterial hypertension
     Route: 048
     Dates: start: 20230712
  18. DULOXETINE [Concomitant]
     Active Substance: DULOXETINE
     Indication: Antidepressant therapy
     Route: 048
     Dates: start: 20230908
  19. DULOXETINE [Concomitant]
     Active Substance: DULOXETINE
     Indication: Anxiety

REACTIONS (15)
  - Pain [Unknown]
  - Infusion site erythema [Unknown]
  - Product administration interrupted [Recovered/Resolved]
  - Underdose [Recovered/Resolved]
  - Drug delivery system malfunction [Recovered/Resolved]
  - Premature labour [Recovered/Resolved]
  - Hip surgery [Unknown]
  - Cholelithiasis [Not Recovered/Not Resolved]
  - Exposure during pregnancy [Recovered/Resolved]
  - Pain in jaw [Not Recovered/Not Resolved]
  - Flushing [Not Recovered/Not Resolved]
  - Nausea [Unknown]
  - Headache [Unknown]
  - Diarrhoea [Unknown]
  - Radial nerve injury [Not Recovered/Not Resolved]

NARRATIVE: CASE EVENT DATE: 20210903
